FAERS Safety Report 8329345-X (Version None)
Quarter: 2012Q2

REPORT INFORMATION
  Report Type: 
  Country: None (occurrence: None)
  Receive Date: 20120502
  Receipt Date: 20110324
  Transmission Date: 20120825
  Serious: No
  Sender: FDA-Public Use
  Company Number: US-ASTRAZENECA-2011SE16732

PATIENT
  Age: 80 Year
  Sex: Female
  Weight: 63.5 kg

DRUGS (2)
  1. FASLODEX [Suspect]
     Indication: BREAST CANCER METASTATIC
     Route: 030
     Dates: start: 20100301, end: 20110101
  2. FASLODEX [Suspect]
     Route: 030
     Dates: start: 20110101

REACTIONS (3)
  - FATIGUE [None]
  - DYSURIA [None]
  - INJECTION SITE PAIN [None]
